FAERS Safety Report 9096714 (Version 1)
Quarter: 2013Q1

REPORT INFORMATION
  Report Type: Spontaneous
  Country: CA (occurrence: CA)
  Receive Date: 20130211
  Receipt Date: 20130211
  Transmission Date: 20140127
  Serious: Yes (Death, Other)
  Sender: FDA-Public Use
  Company Number: CA-ELI_LILLY_AND_COMPANY-CA201302000446

PATIENT
  Age: 19 Year
  Sex: Female
  Weight: 65 kg

DRUGS (16)
  1. ZYPREXA ZYDIS [Suspect]
  2. AMITRIPTYLINE [Concomitant]
     Dosage: 10 MG, UNKNOWN
  3. APO DIAZEPAM [Concomitant]
     Dosage: 5 MG, UNKNOWN
  4. ATIVAN [Concomitant]
     Dosage: 2 MG, UNKNOWN
  5. HALDOL [Concomitant]
     Dosage: UNK
  6. PMS-BENZTROPINE [Concomitant]
  7. RATIO-CITALOPRAM [Concomitant]
  8. RIVA-CITALOPRAM [Concomitant]
     Dosage: UNK
  9. SEROQUEL [Concomitant]
     Dosage: 25 MG, UNKNOWN
  10. STATEX [Concomitant]
  11. TYLENOL /00020001/ [Concomitant]
  12. VIOXX [Concomitant]
  13. ACETAMINOPHEN [Concomitant]
  14. APO-AMITRIPTYLINE [Concomitant]
     Dosage: 10 MG, UNKNOWN
  15. BENZTROPINE MESYLATE [Concomitant]
  16. MORPHINE SULFATE [Concomitant]

REACTIONS (27)
  - Completed suicide [Fatal]
  - Asphyxia [Unknown]
  - Cervical vertebral fracture [Unknown]
  - Suicidal ideation [Unknown]
  - Mouth haemorrhage [Unknown]
  - Depressed level of consciousness [Unknown]
  - Confusional state [Unknown]
  - Face oedema [Unknown]
  - Gait disturbance [Unknown]
  - Drug withdrawal syndrome [Unknown]
  - Major depression [Unknown]
  - Depressed mood [Unknown]
  - Morbid thoughts [Unknown]
  - Psychotic disorder [Unknown]
  - Personality disorder [Unknown]
  - Depersonalisation [Unknown]
  - Disinhibition [Unknown]
  - Affect lability [Unknown]
  - Social avoidant behaviour [Unknown]
  - Aggression [Unknown]
  - Anger [Unknown]
  - Irritability [Unknown]
  - Abnormal behaviour [Unknown]
  - Laceration [Unknown]
  - Injury [Unknown]
  - Sleep disorder [Unknown]
  - Dyskinesia [Unknown]
